FAERS Safety Report 10595795 (Version 2)
Quarter: 2014Q4

REPORT INFORMATION
  Report Type: Other
  Country: IT (occurrence: IT)
  Receive Date: 20141120
  Receipt Date: 20141124
  Transmission Date: 20150529
  Serious: Yes (Hospitalization, Other)
  Sender: FDA-Public Use
  Company Number: IT-MYLANLABS-2014M1010719

PATIENT

DRUGS (6)
  1. MEXILETINE [Concomitant]
     Active Substance: MEXILETINE
     Indication: PRODUCT USED FOR UNKNOWN INDICATION
     Dosage: UNK
  2. ATORVASTATIN [Suspect]
     Active Substance: ATORVASTATIN
     Indication: HYPERCHOLESTEROLAEMIA
     Dosage: 10 MG DAILY
     Route: 048
     Dates: start: 20131001, end: 20141013
  3. BISOPROLOL [Concomitant]
     Active Substance: BISOPROLOL
     Dosage: 10 MG
     Dates: start: 20141014
  4. BISOPROLOL [Concomitant]
     Active Substance: BISOPROLOL
     Indication: PRODUCT USED FOR UNKNOWN INDICATION
     Dosage: UNK
  5. PHENOBARBITAL. [Concomitant]
     Active Substance: PHENOBARBITAL
     Indication: POST-TRAUMATIC EPILEPSY
     Dosage: 100 MG
     Route: 048
     Dates: start: 19720101, end: 20141016
  6. AMIODARONE [Concomitant]
     Active Substance: AMIODARONE
     Indication: VENTRICULAR TACHYCARDIA
     Dosage: 200 MG
     Route: 048
     Dates: start: 20131017, end: 20141013

REACTIONS (5)
  - Fall [Unknown]
  - Haemodynamic instability [Recovering/Resolving]
  - Rhabdomyolysis [Recovered/Resolved]
  - Cardiac failure [Recovered/Resolved]
  - Multi-organ failure [Recovering/Resolving]

NARRATIVE: CASE EVENT DATE: 201406
